FAERS Safety Report 5700337-X (Version None)
Quarter: 2008Q2

REPORT INFORMATION
  Report Type: 
  Country: None (occurrence: None)
  Receive Date: 20080410
  Receipt Date: 20080328
  Transmission Date: 20081010
  Serious: Yes (Other)
  Sender: FDA-Public Use
  Company Number: US-PFIZER INC-2008028519

PATIENT
  Sex: Female
  Weight: 77 kg

DRUGS (33)
  1. LYRICA [Suspect]
     Indication: PAIN
     Route: 048
     Dates: start: 20080310, end: 20080328
  2. AMBIEN [Concomitant]
  3. AMBIEN [Concomitant]
  4. XANAX [Concomitant]
  5. XANAX [Concomitant]
  6. PREMARIN [Concomitant]
  7. PREMARIN [Concomitant]
  8. DICLOFENAC SODIUM [Concomitant]
  9. DICLOFENAC SODIUM [Concomitant]
  10. ROBAXIN [Concomitant]
  11. ROBAXIN [Concomitant]
  12. OXYCONTIN [Concomitant]
  13. OXYCONTIN [Concomitant]
  14. OXYCODONE HYDROCHLORIDE W/PARACETAMOL [Concomitant]
  15. OXYCODONE HYDROCHLORIDE W/PARACETAMOL [Concomitant]
  16. VITAMIN B-12 [Concomitant]
  17. VITAMIN B-12 [Concomitant]
  18. FOLIC ACID [Concomitant]
  19. FOLIC ACID [Concomitant]
  20. PREDNISONE [Concomitant]
  21. PREDNISONE [Concomitant]
  22. METHOTREXATE [Concomitant]
  23. METHOTREXATE [Concomitant]
  24. CELLCEPT [Concomitant]
  25. CELLCEPT [Concomitant]
  26. PROZAC [Concomitant]
  27. PROZAC [Concomitant]
  28. RITALIN [Concomitant]
  29. RITALIN [Concomitant]
  30. ARALEN [Concomitant]
  31. ARALEN [Concomitant]
  32. ABILIFY [Concomitant]
  33. ABILIFY [Concomitant]

REACTIONS (2)
  - ANGER [None]
  - EMOTIONAL DISTRESS [None]
